FAERS Safety Report 5612438-5 (Version None)
Quarter: 2008Q1

REPORT INFORMATION
  Report Type: 
  Country: None (occurrence: None)
  Receive Date: 20080204
  Receipt Date: 20080125
  Transmission Date: 20080703
  Serious: Yes (Other)
  Sender: FDA-Public Use
  Company Number: HQWYE971710JUL04

PATIENT
  Sex: Female
  Weight: 103.06 kg

DRUGS (3)
  1. PREMPRO [Suspect]
     Indication: HORMONE REPLACEMENT THERAPY
     Dosage: UNKNOWN
     Dates: start: 19981001, end: 20000801
  2. PROVERA [Suspect]
     Indication: HORMONE REPLACEMENT THERAPY
     Dosage: UNKNOWN
     Dates: start: 19960101, end: 19981001
  3. PREMARIN [Suspect]
     Indication: OESTROGEN REPLACEMENT THERAPY
     Dosage: UNKNOWN
     Dates: start: 19960101, end: 19981001

REACTIONS (1)
  - BREAST CANCER METASTATIC [None]
